FAERS Safety Report 21242100 (Version 1)
Quarter: 2022Q3

REPORT INFORMATION
  Report Type: Report from Study
  Country: BR (occurrence: BR)
  Receive Date: 20220823
  Receipt Date: 20220823
  Transmission Date: 20221027
  Serious: Yes (Hospitalization)
  Sender: FDA-Public Use
  Company Number: BR-TAKEDA-2022TUS057685

PATIENT
  Age: 45 Year
  Sex: Female

DRUGS (9)
  1. ICATIBANT [Suspect]
     Active Substance: ICATIBANT ACETATE
     Indication: Hereditary angioedema
     Dosage: UNK
     Route: 065
     Dates: start: 20111204
  2. ICATIBANT [Suspect]
     Active Substance: ICATIBANT ACETATE
     Indication: Hereditary angioedema
     Dosage: UNK
     Route: 065
     Dates: start: 20111204
  3. ICATIBANT [Suspect]
     Active Substance: ICATIBANT ACETATE
     Dosage: UNK
     Route: 065
     Dates: start: 20181201
  4. ICATIBANT [Suspect]
     Active Substance: ICATIBANT ACETATE
     Dosage: UNK
     Route: 065
     Dates: start: 20181201
  5. OXANDROLONE [Concomitant]
     Active Substance: OXANDROLONE
     Indication: Prophylaxis
     Dosage: 3 MILLIGRAM, BID
     Route: 048
     Dates: start: 20100708
  6. Aminocaproic acid uf [Concomitant]
     Indication: Prophylaxis
     Dosage: 500 MILLIGRAM, BID
     Route: 048
     Dates: start: 20141106
  7. TRANEXAMIC ACID [Concomitant]
     Active Substance: TRANEXAMIC ACID
     Indication: Hereditary angioedema
     Dosage: UNK
     Route: 065
     Dates: start: 20151112
  8. TRANEXAMIC ACID [Concomitant]
     Active Substance: TRANEXAMIC ACID
     Dosage: 250 MILLIGRAM
     Route: 048
     Dates: start: 20160101, end: 20160801
  9. HUMAN PLASMA [Concomitant]
     Active Substance: HUMAN PLASMA
     Indication: Endoscopy
     Dosage: 3 INTERNATIONAL UNIT, QD
     Route: 042
     Dates: start: 20200315, end: 20200315

REACTIONS (2)
  - Hereditary angioedema [Recovered/Resolved]
  - Oedema [Recovered/Resolved]

NARRATIVE: CASE EVENT DATE: 20140308
